FAERS Safety Report 5550889-8 (Version None)
Quarter: 2007Q4

REPORT INFORMATION
  Report Type: 
  Country: None (occurrence: None)
  Receive Date: 20071212
  Receipt Date: 20070519
  Transmission Date: 20080405
  Serious: No
  Sender: FDA-Public Use
  Company Number: US-AMGEN-KDL225759

PATIENT
  Sex: Female

DRUGS (1)
  1. ENBREL [Suspect]
     Indication: RHEUMATOID ARTHRITIS
     Route: 058
     Dates: start: 20040611

REACTIONS (3)
  - ABNORMAL SENSATION IN EYE [None]
  - FOREIGN BODY SENSATION IN EYES [None]
  - VISION BLURRED [None]
